FAERS Safety Report 11934710 (Version 1)
Quarter: 2016Q1

REPORT INFORMATION
  Report Type: Spontaneous
  Country: US (occurrence: None)
  Receive Date: 20160120
  Receipt Date: 20160120
  Transmission Date: 20160526
  Serious: No
  Sender: FDA-Public Use
  Company Number: None

PATIENT
  Age: 40 Year
  Sex: Male
  Weight: 75.75 kg

DRUGS (4)
  1. PRAVASTATIN 10MG [Suspect]
     Active Substance: PRAVASTATIN\PRAVASTATIN SODIUM
     Indication: BLOOD CHOLESTEROL
     Dosage: 1 DAILY
     Route: 048
     Dates: start: 20140814, end: 20160108
  2. TYLONOL [Concomitant]
  3. DAILY MULTIVITAMIN [Concomitant]
     Active Substance: VITAMINS
  4. FIBER [Concomitant]
     Active Substance: PSYLLIUM HUSK

REACTIONS (5)
  - Cognitive disorder [None]
  - Arthralgia [None]
  - Hypoaesthesia [None]
  - Amnesia [None]
  - Muscle rupture [None]

NARRATIVE: CASE EVENT DATE: 20160115
